FAERS Safety Report 19140766 (Version 1)
Quarter: 2021Q2

REPORT INFORMATION
  Report Type: Spontaneous
  Country: NL (occurrence: SI)
  Receive Date: 20210415
  Receipt Date: 20210415
  Transmission Date: 20210717
  Serious: Yes (Death, Hospitalization, Other)
  Sender: FDA-Public Use
  Company Number: SI-FRESENIUS KABI-FK202103758

PATIENT
  Age: 45 Year
  Sex: Female

DRUGS (8)
  1. CAPECITABINE. [Suspect]
     Active Substance: CAPECITABINE
     Indication: PRODUCT USED FOR UNKNOWN INDICATION
     Dosage: 3RD LINE, 1000MG/M2
     Route: 065
     Dates: start: 20190626
  2. PERTUZUMAB. [Suspect]
     Active Substance: PERTUZUMAB
     Indication: BREAST CANCER METASTATIC
     Dosage: 1ST LINE
     Route: 065
  3. TRASTUZUMAB. [Suspect]
     Active Substance: TRASTUZUMAB
     Dosage: UNK
     Route: 065
     Dates: end: 201603
  4. DOCETAXEL (MANUFACTURER UNKNOWN) [Suspect]
     Active Substance: DOCETAXEL
     Indication: BREAST CANCER METASTATIC
     Dosage: UNK
     Route: 065
     Dates: end: 201603
  5. DOCETAXEL (MANUFACTURER UNKNOWN) [Suspect]
     Active Substance: DOCETAXEL
     Dosage: 3RD LINE
     Route: 065
     Dates: start: 201905
  6. PACLITAXEL (MANUFACTURER UNKNOWN) [Suspect]
     Active Substance: PACLITAXEL
     Indication: BREAST CANCER METASTATIC
     Dosage: 1ST LINE
     Route: 065
  7. DOCETAXEL (MANUFACTURER UNKNOWN) [Suspect]
     Active Substance: DOCETAXEL
     Dosage: 1ST LINE
     Route: 065
     Dates: start: 2018
  8. TRASTUZUMAB. [Suspect]
     Active Substance: TRASTUZUMAB
     Indication: BREAST CANCER METASTATIC
     Dosage: UNK
     Route: 065

REACTIONS (6)
  - Neoplasm progression [Not Recovered/Not Resolved]
  - Diarrhoea [Unknown]
  - Epilepsy [Unknown]
  - Laryngeal oedema [Not Recovered/Not Resolved]
  - Paronychia [Unknown]
  - Cough [Unknown]

NARRATIVE: CASE EVENT DATE: 201810
